FAERS Safety Report 14134448 (Version 1)
Quarter: 2017Q4

REPORT INFORMATION
  Report Type: Report from Study
  Country: US (occurrence: US)
  Receive Date: 20171027
  Receipt Date: 20171027
  Transmission Date: 20180321
  Serious: Yes (Other)
  Sender: FDA-Public Use
  Company Number: US-JNJFOC-20160424249

PATIENT
  Age: 59 Year
  Sex: Male

DRUGS (3)
  1. IMBRUVICA [Suspect]
     Active Substance: IBRUTINIB
     Indication: CHRONIC LYMPHOCYTIC LEUKAEMIA
     Route: 048
     Dates: start: 20140218
  2. OXYMETAZOLINE [Concomitant]
     Active Substance: OXYMETAZOLINE
  3. ATHLETES FOOT [Concomitant]

REACTIONS (5)
  - Spontaneous haemorrhage [Not Recovered/Not Resolved]
  - Post procedural infection [Unknown]
  - Post procedural haemorrhage [Unknown]
  - Squamous cell carcinoma [Unknown]
  - Basal cell carcinoma [Not Recovered/Not Resolved]

NARRATIVE: CASE EVENT DATE: 20160418
